FAERS Safety Report 12769348 (Version 1)
Quarter: 2016Q3

REPORT INFORMATION
  Report Type: Spontaneous
  Country: US (occurrence: US)
  Receive Date: 20160921
  Receipt Date: 20160921
  Transmission Date: 20161109
  Serious: Yes (Hospitalization)
  Sender: FDA-Public Use
  Company Number: US-BEH-2016073605

PATIENT
  Sex: Male
  Weight: 92.52 kg

DRUGS (32)
  1. OMEPRAZOLE. [Concomitant]
     Active Substance: OMEPRAZOLE
  2. FLOMAX [Concomitant]
     Active Substance: TAMSULOSIN HYDROCHLORIDE
  3. ACIDOPHILUS [Concomitant]
     Active Substance: LACTOBACILLUS ACIDOPHILUS
  4. KEPPRA [Concomitant]
     Active Substance: LEVETIRACETAM
  5. BROVANA [Concomitant]
     Active Substance: ARFORMOTEROL TARTRATE
  6. ACTONEL [Concomitant]
     Active Substance: RISEDRONATE SODIUM
  7. CHLORPHENIRAMINE                   /00072501/ [Concomitant]
     Active Substance: CHLORPHENIRAMINE
  8. GLUCOPHAGE [Concomitant]
     Active Substance: METFORMIN HYDROCHLORIDE
  9. XARELTO [Concomitant]
     Active Substance: RIVAROXABAN
  10. DONEPEZIL. [Concomitant]
     Active Substance: DONEPEZIL
  11. SPIRIVA [Concomitant]
     Active Substance: TIOTROPIUM BROMIDE MONOHYDRATE
  12. TRADJENTA [Concomitant]
     Active Substance: LINAGLIPTIN
  13. EPIPEN [Concomitant]
     Active Substance: EPINEPHRINE
  14. BROMIDES [Concomitant]
     Active Substance: UNSPECIFIED INGREDIENT
  15. METOPROLOL. [Concomitant]
     Active Substance: METOPROLOL
  16. CALTRATE                           /00944201/ [Concomitant]
  17. HIZENTRA [Suspect]
     Active Substance: HUMAN IMMUNOGLOBULIN G
     Indication: IMMUNODEFICIENCY COMMON VARIABLE
     Dosage: 4 G, Q3W
     Route: 058
     Dates: start: 20110221
  18. ZANTAC [Concomitant]
     Active Substance: RANITIDINE HYDROCHLORIDE
  19. MELATONIN [Concomitant]
     Active Substance: MELATONIN
  20. OXYGEN. [Concomitant]
     Active Substance: OXYGEN
  21. VITAMINS WITH MINERALS [Concomitant]
     Active Substance: MINERALS\VITAMINS
  22. SERTRALINE [Concomitant]
     Active Substance: SERTRALINE HYDROCHLORIDE
  23. SIMVASTATIN. [Concomitant]
     Active Substance: SIMVASTATIN
  24. DIPHENHYDRAMINE. [Concomitant]
     Active Substance: DIPHENHYDRAMINE
  25. IPRATROPIUM [Concomitant]
     Active Substance: IPRATROPIUM
  26. CLOTRIMAZOLE. [Concomitant]
     Active Substance: CLOTRIMAZOLE
  27. TYLENOL [Concomitant]
     Active Substance: ACETAMINOPHEN
  28. COLACE [Concomitant]
     Active Substance: DOCUSATE SODIUM
  29. FLONASE [Concomitant]
     Active Substance: FLUTICASONE PROPIONATE
  30. PREDNISONE. [Concomitant]
     Active Substance: PREDNISONE
  31. BUDESONIDE. [Concomitant]
     Active Substance: BUDESONIDE
  32. THEOPHYLLINE [Concomitant]
     Active Substance: THEOPHYLLINE ANHYDROUS

REACTIONS (3)
  - Head injury [Unknown]
  - Cerebrovascular accident [Unknown]
  - Fall [Unknown]
